FAERS Safety Report 9603786 (Version 2)
Quarter: 2013Q4

REPORT INFORMATION
  Report Type: Report from Study
  Country: JP (occurrence: JP)
  Receive Date: 20131008
  Receipt Date: 20131008
  Transmission Date: 20140711
  Serious: Yes (Hospitalization)
  Sender: FDA-Public Use
  Company Number: JP-PFIZER INC-2010066335

PATIENT
  Age: 61 Year
  Sex: Female
  Weight: 57.5 kg

DRUGS (7)
  1. TOFACITINIB CITRATE [Suspect]
     Indication: RHEUMATOID ARTHRITIS
     Dosage: 5 MG, 2X/DAY
     Route: 048
     Dates: start: 20100501, end: 20100524
  2. PREDONINE [Concomitant]
     Indication: RHEUMATOID ARTHRITIS
     Dosage: 5 MG, 1X/DAY
     Route: 048
     Dates: start: 20090925
  3. LOXONIN [Concomitant]
     Indication: RHEUMATOID ARTHRITIS
     Dosage: 60 MG, 2X/DAY
     Route: 048
     Dates: start: 20090925, end: 20100524
  4. ADOFEED [Concomitant]
     Indication: RHEUMATOID ARTHRITIS
     Dosage: UNK MG, 1X/DAY
     Route: 062
     Dates: start: 20090925, end: 20100524
  5. ONE-ALPHA [Concomitant]
     Indication: OSTEOPOROSIS
     Dosage: 1 UG, 1X/DAY
     Route: 048
     Dates: start: 20090925, end: 20100524
  6. MECOBALAMIN [Concomitant]
     Dosage: 500 UG, 3X/DAY
     Route: 048
     Dates: start: 20090925, end: 20100524
  7. GASTROM [Concomitant]
     Indication: PROPHYLAXIS AGAINST GASTROINTESTINAL ULCER
     Dosage: 1.5 G, 2X/DAY
     Route: 048
     Dates: start: 20090925

REACTIONS (1)
  - Cerebral haemorrhage [Recovering/Resolving]
